FAERS Safety Report 8190359-4 (Version None)
Quarter: 2012Q1

REPORT INFORMATION
  Report Type: 
  Country: None (occurrence: None)
  Receive Date: 20120307
  Receipt Date: 20120302
  Transmission Date: 20120608
  Serious: Yes (Other)
  Sender: FDA-Public Use
  Company Number: US-PFIZER INC-2011256622

PATIENT
  Sex: Male

DRUGS (4)
  1. PREDNISONE [Concomitant]
     Indication: TRANSPLANT
     Dosage: UNK
  2. MYFORTIC [Concomitant]
     Indication: TRANSPLANT
     Dosage: 360 TWICE DAILY
  3. RAPAMUNE [Suspect]
     Indication: RENAL TRANSPLANT
     Dosage: 4 MG, UNK
     Route: 048
     Dates: start: 20110404, end: 20110907
  4. RAPAMUNE [Suspect]
     Indication: SKIN CANCER

REACTIONS (2)
  - OEDEMA PERIPHERAL [None]
  - LABORATORY TEST ABNORMAL [None]
